FAERS Safety Report 16317048 (Version 2)
Quarter: 2019Q2

REPORT INFORMATION
  Report Type: Spontaneous
  Country: US (occurrence: US)
  Receive Date: 20190515
  Receipt Date: 20190619
  Transmission Date: 20190711
  Serious: No
  Sender: FDA-Public Use
  Company Number: US-SA-2019SA129333

PATIENT
  Age: 65 Year
  Sex: Female

DRUGS (1)
  1. DUPIXENT [Suspect]
     Active Substance: DUPILUMAB
     Dosage: UNK
     Dates: start: 20190401

REACTIONS (5)
  - Rash pustular [Unknown]
  - Product dose omission [Unknown]
  - Viral infection [Unknown]
  - Staphylococcus test positive [Unknown]
  - Lethargy [Unknown]

NARRATIVE: CASE EVENT DATE: 20190401
